FAERS Safety Report 15075465 (Version 1)
Quarter: 2018Q2

REPORT INFORMATION
  Report Type: Report from Study
  Country: US (occurrence: US)
  Receive Date: 20180627
  Receipt Date: 20180627
  Transmission Date: 20180711
  Serious: Yes (Other)
  Sender: FDA-Public Use
  Company Number: US-SAOL THERAPEUTICS-2018SAO00507

PATIENT
  Age: 58 Year
  Sex: Male

DRUGS (28)
  1. COMPOUNDED BACLOFEN [Suspect]
     Active Substance: BACLOFEN
     Dosage: 150.17 ?G, \DAY
     Dates: start: 20160721
  2. DILAUDID [Suspect]
     Active Substance: HYDROMORPHONE HYDROCHLORIDE
     Dosage: 2.0588 MG, \DAY- MAX
     Dates: start: 20160316, end: 20160509
  3. DILAUDID [Suspect]
     Active Substance: HYDROMORPHONE HYDROCHLORIDE
     Dosage: 2.1842 MG, \DAY- MAX
     Dates: start: 20160509
  4. DILAUDID [Suspect]
     Active Substance: HYDROMORPHONE HYDROCHLORIDE
     Dosage: 2.8564 MG, \DAY-MAX
     Dates: start: 20160721
  5. BUPIVACAINE. [Suspect]
     Active Substance: BUPIVACAINE
     Dosage: 7.501 MG, \DAY
     Route: 037
     Dates: start: 20160316
  6. CLONIDINE. [Suspect]
     Active Substance: CLONIDINE
     Dosage: 157.64 ?G, \DAY-MAX
     Dates: start: 20160721, end: 20160721
  7. CLONIDINE. [Suspect]
     Active Substance: CLONIDINE
     Dosage: 75.09 ?G, \DAY
     Dates: start: 20160721
  8. BUPIVACAINE. [Suspect]
     Active Substance: BUPIVACAINE
     Dosage: 17.138 MG, \DAY - MAX
     Dates: start: 20160721
  9. CLONIDINE. [Suspect]
     Active Substance: CLONIDINE
     Dosage: 102.94 ?G, \DAY-MAX
     Dates: start: 20160316, end: 20160509
  10. CLONIDINE. [Suspect]
     Active Substance: CLONIDINE
     Dosage: 109.21 ?G, \DAY-MAX
     Dates: start: 20160509
  11. BUPIVACAINE. [Suspect]
     Active Substance: BUPIVACAINE
     Dosage: 9.010 MG, \DAY
     Dates: start: 20160721
  12. COMPOUNDED BACLOFEN [Suspect]
     Active Substance: BACLOFEN
     Dosage: 180.32 ?G, \DAY
     Route: 037
     Dates: start: 20160721, end: 20160721
  13. DILAUDID [Suspect]
     Active Substance: HYDROMORPHONE HYDROCHLORIDE
     Dosage: 1.2501 MG, \DAY
     Route: 037
     Dates: start: 20160316
  14. DILAUDID [Suspect]
     Active Substance: HYDROMORPHONE HYDROCHLORIDE
     Dosage: 3.1528 MG, \DAY-MAX
     Dates: start: 20160721, end: 20160721
  15. CLONIDINE. [Suspect]
     Active Substance: CLONIDINE
     Dosage: 90.16 ?G, \DAY
     Route: 037
     Dates: start: 20160721, end: 20160721
  16. COMPOUNDED BACLOFEN [Suspect]
     Active Substance: BACLOFEN
     Dosage: 125.01 ?G, \DAY
     Route: 037
     Dates: start: 20160316
  17. COMPOUNDED BACLOFEN [Suspect]
     Active Substance: BACLOFEN
     Dosage: 285.64 ?G, \DAY-MAX
     Dates: start: 20160721
  18. BUPIVACAINE. [Suspect]
     Active Substance: BUPIVACAINE
     Dosage: 12.353 MG, \DAY-MAX
     Dates: start: 20160316, end: 20160509
  19. COMPOUNDED BACLOFEN [Suspect]
     Active Substance: BACLOFEN
     Dosage: 218.42 ?G, \DAY-MAX
     Dates: start: 20160509
  20. DILAUDID [Suspect]
     Active Substance: HYDROMORPHONE HYDROCHLORIDE
     Dosage: 1.8032 MG, \DAY
     Route: 037
     Dates: start: 20160721, end: 20160721
  21. CLONIDINE. [Suspect]
     Active Substance: CLONIDINE
     Dosage: 142.82 ?G, \DAY-MAX
     Dates: start: 20160721
  22. BUPIVACAINE. [Suspect]
     Active Substance: BUPIVACAINE
     Dosage: 13.105 MG, \DAY-MAX
     Dates: start: 20160509
  23. BUPIVACAINE. [Suspect]
     Active Substance: BUPIVACAINE
     Dosage: 18.917 MG, \DAY - MAX
     Dates: start: 20160721, end: 20160721
  24. DILAUDID [Suspect]
     Active Substance: HYDROMORPHONE HYDROCHLORIDE
     Dosage: 1.5017 MG, \DAY
     Dates: start: 20160721
  25. CLONIDINE. [Suspect]
     Active Substance: CLONIDINE
     Dosage: 62.51 ?G, \DAY
     Route: 037
     Dates: start: 20160316
  26. BUPIVACAINE. [Suspect]
     Active Substance: BUPIVACAINE
     Dosage: 10.819 MG, \DAY
     Route: 037
     Dates: start: 20160721, end: 20160721
  27. COMPOUNDED BACLOFEN [Suspect]
     Active Substance: BACLOFEN
     Dosage: 205.88 ?G, \DAY-MAX
     Dates: start: 20160316, end: 20160509
  28. COMPOUNDED BACLOFEN [Suspect]
     Active Substance: BACLOFEN
     Dosage: 315.28 ?G, \DAY- MAX
     Dates: start: 20160721, end: 20160721

REACTIONS (3)
  - Drug withdrawal syndrome [Recovered/Resolved]
  - Pain [Recovered/Resolved]
  - Hyperaesthesia [Recovered/Resolved]

NARRATIVE: CASE EVENT DATE: 20160509
